FAERS Safety Report 6428938-4 (Version None)
Quarter: 2009Q4

REPORT INFORMATION
  Report Type: 
  Country: None (occurrence: None)
  Receive Date: 20091104
  Receipt Date: 20091104
  Transmission Date: 20100525
  Serious: Yes (Disabling)
  Sender: FDA-Public Use
  Company Number: None

PATIENT
  Age: 68 Year
  Sex: Female
  Weight: 61.4 kg

DRUGS (1)
  1. ALENDRONATE [Suspect]
     Indication: OSTEOPOROSIS
     Dosage: 70 MG ALENDRONATE (TEVA) Q 1 WEEK PO
     Route: 048

REACTIONS (3)
  - ASTHENIA [None]
  - EXERCISE TOLERANCE DECREASED [None]
  - MYALGIA [None]
